FAERS Safety Report 11102470 (Version 2)
Quarter: 2016Q1

REPORT INFORMATION
  Report Type: Report from Study
  Country: ES (occurrence: ES)
  Receive Date: 20150511
  Receipt Date: 20160211
  Transmission Date: 20160525
  Serious: Yes (Hospitalization)
  Sender: FDA-Public Use
  Company Number: PHHY2015ES053777

PATIENT
  Age: 36 Year
  Sex: Female
  Weight: 86 kg

DRUGS (21)
  1. PERTUZUMAB [Suspect]
     Active Substance: PERTUZUMAB
     Dosage: 420 MG, 1 IN THREE WEEKS (MAINTENANCE DOSE)
     Route: 042
  2. TRASTUZUMAB [Suspect]
     Active Substance: TRASTUZUMAB
     Dosage: 6 MG/KG, 1 IN THREE WEEKS (MAINTAINANCE DOSE)
     Route: 042
  3. LEVOFLOXACINO [Concomitant]
     Indication: FEBRILE NEUTROPENIA
     Dosage: 750 MG, UNK
     Route: 048
     Dates: start: 20150402, end: 20150407
  4. FLUCONAZOL [Concomitant]
     Active Substance: FLUCONAZOLE
     Indication: MUCOSAL INFLAMMATION
     Dosage: 100 MG, UNK
     Route: 048
     Dates: start: 20150402, end: 20150405
  5. EPIRUBICIN [Suspect]
     Active Substance: EPIRUBICIN
     Indication: HER-2 POSITIVE BREAST CANCER
     Dosage: 100 MG/M2, 1 IN THREE WEEKS
     Route: 042
     Dates: start: 20150108
  6. PERTUZUMAB [Suspect]
     Active Substance: PERTUZUMAB
     Indication: HER-2 POSITIVE BREAST CANCER
     Dosage: 840 MG, (LOADING DOSE, CYCLE 1 AS PER PROTOCOL)
     Route: 042
     Dates: start: 20150409
  7. DEXAMETASON [Concomitant]
     Active Substance: DEXAMETHASONE
     Indication: PAIN
     Dosage: 1 MG, UNK
     Route: 048
     Dates: start: 20150226
  8. 5 FLUORO URACIL [Suspect]
     Active Substance: FLUOROURACIL
     Dosage: 980 MG, 1 IN 3 WEEK
     Dates: end: 20150318
  9. CYCLOPHOSPHAMIDE. [Suspect]
     Active Substance: CYCLOPHOSPHAMIDE
     Dosage: 1176 MG, 1 IN 3 WEEK
     Route: 042
     Dates: end: 20150318
  10. EPIRUBICIN [Suspect]
     Active Substance: EPIRUBICIN
     Dosage: 196 MG, 1 IN 3 WEEK
     Route: 042
     Dates: end: 20150318
  11. ONDANSETRON [Concomitant]
     Active Substance: ONDANSETRON
     Indication: NAUSEA
     Route: 048
     Dates: start: 20141222
  12. CYCLOPHOSPHAMIDE. [Suspect]
     Active Substance: CYCLOPHOSPHAMIDE
     Indication: HER-2 POSITIVE BREAST CANCER
     Dosage: 600 MG/M2, 1 IN THREE WEEKS
     Route: 042
     Dates: start: 20150108
  13. TRASTUZUMAB [Suspect]
     Active Substance: TRASTUZUMAB
     Indication: HER-2 POSITIVE BREAST CANCER
     Dosage: 8 MG/KG, (LOADING DOSE )
     Route: 042
     Dates: start: 20150409
  14. OMEPRAZOLE. [Concomitant]
     Active Substance: OMEPRAZOLE
     Indication: NAUSEA
     Dosage: 20 MG, UNK
     Route: 048
     Dates: start: 20141222
  15. DOCETAXEL. [Suspect]
     Active Substance: DOCETAXEL
     Indication: HER-2 POSITIVE BREAST CANCER
     Dosage: 100 MG/M2, 1 IN THREE WEEKS
     Route: 042
     Dates: start: 20150409
  16. 5 FLUORO URACIL [Suspect]
     Active Substance: FLUOROURACIL
     Indication: HER-2 POSITIVE BREAST CANCER
     Dosage: 500 MG/M2, 1 IN EVERY THREE WEEKS
     Route: 042
     Dates: start: 20150108
  17. DEXAMETASON [Concomitant]
     Active Substance: DEXAMETHASONE
     Indication: INFLAMMATION
  18. ACICLOVIR [Concomitant]
     Active Substance: ACYCLOVIR
     Indication: GENITAL HERPES
     Dosage: 200 MG, UNK
     Route: 048
     Dates: start: 20150402, end: 20150406
  19. NO TREATMENT RECEIVED [Suspect]
     Active Substance: UNSPECIFIED INGREDIENT
     Indication: PRODUCT USED FOR UNKNOWN INDICATION
     Dosage: UNK
     Route: 065
  20. CLEXANE [Concomitant]
     Active Substance: ENOXAPARIN SODIUM
     Indication: THROMBOSIS
     Dosage: 100 MG, UNK
     Route: 058
     Dates: start: 20150121
  21. TARDYFERON [Concomitant]
     Active Substance: FERROUS SULFATE\FOLIC ACID
     Indication: IRON DEFICIENCY ANAEMIA
     Dosage: 160 MG, UNK
     Route: 048
     Dates: start: 20150128

REACTIONS (8)
  - Chills [Unknown]
  - Febrile neutropenia [Recovered/Resolved]
  - Dyspnoea [Unknown]
  - Febrile neutropenia [Recovered/Resolved]
  - Bacteraemia [Unknown]
  - Cough [Unknown]
  - Jugular vein thrombosis [Unknown]
  - Pyrexia [Unknown]

NARRATIVE: CASE EVENT DATE: 20150121
